FAERS Safety Report 5945624-5 (Version None)
Quarter: 2008Q4

REPORT INFORMATION
  Report Type: 
  Country: None (occurrence: None)
  Receive Date: 20081107
  Receipt Date: 20081027
  Transmission Date: 20090506
  Serious: Yes (Other)
  Sender: FDA-Public Use
  Company Number: US-PFIZER INC-2008091481

PATIENT
  Sex: Female
  Weight: 48 kg

DRUGS (5)
  1. LYRICA [Suspect]
     Indication: POST HERPETIC NEURALGIA
     Route: 048
     Dates: start: 20080101
  2. PREDNISONE TAB [Concomitant]
  3. FLEXERIL [Concomitant]
  4. METHOTREXATE [Concomitant]
  5. ACTONEL [Concomitant]

REACTIONS (1)
  - BLOOD PRESSURE INCREASED [None]
